FAERS Safety Report 13065046 (Version 1)
Quarter: 2016Q4

REPORT INFORMATION
  Report Type: Spontaneous
  Country: US (occurrence: US)
  Receive Date: 20161223
  Receipt Date: 20161223
  Transmission Date: 20170207
  Serious: Yes (Death)
  Sender: FDA-Public Use
  Company Number: None

PATIENT
  Age: 57 Year
  Sex: Female

DRUGS (1)
  1. TETRABENAZINE 12.5MG SUN [Suspect]
     Active Substance: TETRABENAZINE
     Indication: HUNTINGTON^S DISEASE
     Dosage: 37.5MG DAILY, DIVIDED DOSES PO
     Route: 048
     Dates: start: 20160204, end: 20161126

REACTIONS (1)
  - Death [None]

NARRATIVE: CASE EVENT DATE: 20161126
